FAERS Safety Report 8885924 (Version 8)
Quarter: 2015Q1

REPORT INFORMATION
  Report Type: Report from Study
  Country: RU (occurrence: RU)
  Receive Date: 20121105
  Receipt Date: 20150204
  Transmission Date: 20150721
  Serious: Yes (Hospitalization)
  Sender: FDA-Public Use
  Company Number: PHHO2012RU015852

PATIENT
  Age: 7 Year
  Sex: Female
  Weight: 37 kg

DRUGS (5)
  1. CEFTRIAXONE. [Suspect]
     Active Substance: CEFTRIAXONE
     Indication: BRONCHOPNEUMONIA
     Dosage: 8.2 G, DAILY
     Route: 042
     Dates: start: 20121025
  2. BISOPROLOL [Suspect]
     Active Substance: BISOPROLOL
     Indication: PRODUCT USED FOR UNKNOWN INDICATION
     Route: 065
  3. METHOTREXATE [Suspect]
     Active Substance: METHOTREXATE
     Indication: PRODUCT USED FOR UNKNOWN INDICATION
     Route: 065
  4. ACZ885 [Suspect]
     Active Substance: CANAKINUMAB
     Indication: JUVENILE IDIOPATHIC ARTHRITIS
     Dosage: 4 MG/KG, QMO
     Route: 058
     Dates: start: 20121017
  5. ACZ885 [Suspect]
     Active Substance: CANAKINUMAB
     Dosage: 2 MG/KG, QMO
     Route: 058
     Dates: start: 20140304, end: 20141015

REACTIONS (6)
  - Aspartate aminotransferase increased [Unknown]
  - Juvenile idiopathic arthritis [Recovering/Resolving]
  - Bronchopneumonia [Recovered/Resolved]
  - Dermatitis allergic [Recovered/Resolved with Sequelae]
  - Alanine aminotransferase increased [Not Recovered/Not Resolved]
  - Pneumonia [Recovered/Resolved]

NARRATIVE: CASE EVENT DATE: 20121025
